FAERS Safety Report 22258375 (Version 3)
Quarter: 2023Q2

REPORT INFORMATION
  Report Type: Other
  Country: JP (occurrence: None)
  Receive Date: 20230427
  Receipt Date: 20230518
  Transmission Date: 20230721
  Serious: Yes (Other)
  Sender: FDA-Public Use
  Company Number: JP-ROCHE-3337964

PATIENT
  Age: 78 Year
  Sex: Female

DRUGS (5)
  1. BEVACIZUMAB [Suspect]
     Active Substance: BEVACIZUMAB
     Indication: Breast cancer
     Route: 065
     Dates: start: 201906, end: 2020
  2. PACLITAXEL [Suspect]
     Active Substance: PACLITAXEL
     Indication: Breast cancer
     Route: 065
  3. ERIBULIN [Concomitant]
     Active Substance: ERIBULIN
  4. ABEMACICLIB [Concomitant]
     Active Substance: ABEMACICLIB
  5. LETROZOLE [Concomitant]
     Active Substance: LETROZOLE

REACTIONS (2)
  - Malignant neoplasm progression [Unknown]
  - Drug ineffective [Unknown]
